FAERS Safety Report 10850898 (Version 1)
Quarter: 2015Q1

REPORT INFORMATION
  Report Type: Spontaneous
  Country: US (occurrence: US)
  Receive Date: 20150222
  Receipt Date: 20150222
  Transmission Date: 20150721
  Serious: No
  Sender: FDA-Public Use
  Company Number: US-ALLERGAN-1400525US

PATIENT
  Age: 60 Year
  Sex: Female

DRUGS (6)
  1. BLOOD PRESSURE MEDICATION NOS [Concomitant]
     Active Substance: UNSPECIFIED INGREDIENT
     Indication: HYPERTENSION
     Dosage: UNK
  2. BOTOX COSMETIC [Concomitant]
     Active Substance: ONABOTULINUMTOXINA
     Indication: SKIN WRINKLING
     Dosage: UNK
  3. MEDICATION FOR URINARY INCONTINENCE NOS #2 [Concomitant]
     Indication: URINARY INCONTINENCE
     Dosage: UNK
     Dates: start: 201307
  4. BOTOX [Suspect]
     Active Substance: ONABOTULINUMTOXINA
     Indication: TORTICOLLIS
     Dosage: UNK
     Route: 030
     Dates: start: 201310, end: 201310
  5. MEDICATION FOR URINARY INCONTINENCE NOS #1 [Concomitant]
     Indication: URINARY INCONTINENCE
     Dosage: UNK
     Dates: end: 201307
  6. BIOIDENTICAL HORMONES NOS [Concomitant]
     Indication: PRODUCT USED FOR UNKNOWN INDICATION
     Dosage: UNK

REACTIONS (1)
  - Therapeutic response decreased [Unknown]
